FAERS Safety Report 19264358 (Version 1)
Quarter: 2021Q2

REPORT INFORMATION
  Report Type: Spontaneous
  Country: US (occurrence: US)
  Receive Date: 20210517
  Receipt Date: 20210517
  Transmission Date: 20210717
  Serious: Yes (Hospitalization)
  Sender: FDA-Public Use
  Company Number: None

PATIENT
  Age: 64 Year
  Sex: Female

DRUGS (16)
  1. CALCIUM [Concomitant]
     Active Substance: CALCIUM
  2. CYMBALTA [Concomitant]
     Active Substance: DULOXETINE HYDROCHLORIDE
  3. APRISO [Concomitant]
     Active Substance: MESALAMINE
  4. MAGNESIUM [Concomitant]
     Active Substance: MAGNESIUM
  5. GLUCOSE TABLETS [Concomitant]
     Active Substance: DEXTROSE
  6. PLAQUENIL [Concomitant]
     Active Substance: HYDROXYCHLOROQUINE SULFATE
  7. LYRICA [Concomitant]
     Active Substance: PREGABALIN
  8. MELATONIN [Concomitant]
     Active Substance: MELATONIN
  9. TOPIRAMATE. [Concomitant]
     Active Substance: TOPIRAMATE
  10. TIZANIDINE. [Concomitant]
     Active Substance: TIZANIDINE
  11. LOMOTIL [Concomitant]
     Active Substance: ATROPINE SULFATE\DIPHENOXYLATE HYDROCHLORIDE
  12. NORCO [Concomitant]
     Active Substance: ACETAMINOPHEN\HYDROCODONE BITARTRATE
  13. VITAMIN D3 [Concomitant]
     Active Substance: CHOLECALCIFEROL
  14. LEFLUNOMIDE. [Concomitant]
     Active Substance: LEFLUNOMIDE
  15. PFIZER?BIONTECH COVID?19 VACCINE [Suspect]
     Active Substance: TOZINAMERAN
  16. HUMIRA [Suspect]
     Active Substance: ADALIMUMAB
     Dosage: ?          OTHER FREQUENCY:EVERY 12 DAYS;?
     Route: 058
     Dates: start: 20190626

REACTIONS (7)
  - Hypotension [None]
  - Pain [None]
  - Condition aggravated [None]
  - Dyspnoea [None]
  - Anaphylactic reaction [None]
  - Therapy interrupted [None]
  - Injection site reaction [None]

NARRATIVE: CASE EVENT DATE: 20210307
